FAERS Safety Report 9920050 (Version 1)
Quarter: 2014Q1

REPORT INFORMATION
  Report Type: Spontaneous
  Country: DE (occurrence: DE)
  Receive Date: 20140224
  Receipt Date: 20140224
  Transmission Date: 20141002
  Serious: Yes (Hospitalization)
  Sender: FDA-Public Use
  Company Number: DE-ABBVIE-14P-062-1203373-00

PATIENT
  Age: 52 Year
  Sex: Female

DRUGS (1)
  1. HUMIRA [Suspect]
     Indication: PSORIATIC ARTHROPATHY
     Route: 058
     Dates: start: 20110921, end: 20140124

REACTIONS (6)
  - Iron deficiency [Recovering/Resolving]
  - Psoriatic arthropathy [Recovering/Resolving]
  - Pyrexia [Recovering/Resolving]
  - Phlebitis [Recovering/Resolving]
  - Macular oedema [Recovering/Resolving]
  - Eye disorder [Not Recovered/Not Resolved]
